FAERS Safety Report 6231966-5 (Version None)
Quarter: 2009Q2

REPORT INFORMATION
  Report Type: 
  Country: None (occurrence: None)
  Receive Date: 20090616
  Receipt Date: 20090303
  Transmission Date: 20091009
  Serious: No
  Sender: FDA-Public Use
  Company Number: US-ABBOTT-09P-163-0560881-00

PATIENT
  Sex: Female

DRUGS (3)
  1. GENGRAF [Suspect]
     Indication: PSORIASIS
     Dates: start: 20080910, end: 20090303
  2. HUMIRA [Suspect]
     Indication: PSORIASIS
     Route: 058
     Dates: start: 20090101, end: 20090303
  3. RAPTIVA [Suspect]
     Indication: DRUG USE FOR UNKNOWN INDICATION

REACTIONS (1)
  - NECROTISING ULCERATIVE PERIODONTITIS [None]
